FAERS Safety Report 6836158-4 (Version None)
Quarter: 2010Q3

REPORT INFORMATION
  Report Type: 
  Country: None (occurrence: None)
  Receive Date: 20100713
  Receipt Date: 20100702
  Transmission Date: 20110219
  Serious: Yes (Other)
  Sender: FDA-Public Use
  Company Number: FR-PFIZER INC-2010082810

PATIENT
  Age: 44 Year
  Sex: Male

DRUGS (7)
  1. ZYVOX [Suspect]
     Dosage: UNK
     Route: 048
     Dates: start: 20100325, end: 20100327
  2. TAZOCILLINE [Suspect]
     Dosage: UNK
     Route: 042
     Dates: start: 20100326, end: 20100328
  3. VITAMIN B1 TAB [Suspect]
     Dosage: UNK
     Route: 048
     Dates: start: 20100319, end: 20100323
  4. VITAMIN B1 TAB [Suspect]
     Dosage: UNK
     Dates: start: 20100326
  5. VITAMIN B6 [Suspect]
     Dosage: UNK
     Route: 048
     Dates: start: 20100319, end: 20100323
  6. VITAMIN B6 [Suspect]
     Dosage: UNK
     Dates: start: 20100326
  7. NEURONTIN [Concomitant]

REACTIONS (1)
  - RASH MORBILLIFORM [None]
